FAERS Safety Report 13616255 (Version 1)
Quarter: 2017Q2

REPORT INFORMATION
  Report Type: Spontaneous
  Country: US (occurrence: US)
  Receive Date: 20170606
  Receipt Date: 20170606
  Transmission Date: 20170830
  Serious: Yes (Death, Hospitalization)
  Sender: FDA-Public Use
  Company Number: US-BECTON DICKINSON-2017BDN00164

PATIENT
  Age: 80 Year
  Sex: Female

DRUGS (5)
  1. LIDOCAINE. [Concomitant]
     Active Substance: LIDOCAINE
     Dosage: 1 ML, ONCE
     Route: 065
  2. CHLORHEXIDINE-ALCOHOL [Suspect]
     Active Substance: ALCOHOL\CHLORHEXIDINE GLUCONATE
     Indication: ANTIBIOTIC PROPHYLAXIS
     Dosage: 26 ML, ONCE
     Route: 061
  3. ISOVUE 300 [Concomitant]
     Active Substance: IOPAMIDOL
     Dosage: 0.5 ML, ONCE
     Route: 014
  4. METHYLPREDNISONE [Suspect]
     Active Substance: METHYLPREDNISOLONE
     Indication: SACROILIITIS
     Dosage: 40 MG, ONCE
     Route: 014
  5. BUPIVACAINE. [Concomitant]
     Active Substance: BUPIVACAINE
     Dosage: 0.5 %, UNK
     Route: 014

REACTIONS (2)
  - Clostridial infection [Fatal]
  - Sacroiliitis [Fatal]
